FAERS Safety Report 8223054-3 (Version None)
Quarter: 2012Q1

REPORT INFORMATION
  Report Type: 
  Country: None (occurrence: None)
  Receive Date: 20120321
  Receipt Date: 20120312
  Transmission Date: 20120608
  Serious: Yes (Other)
  Sender: FDA-Public Use
  Company Number: US-ASTRAZENECA-2011SE32258

PATIENT
  Age: 46 Year
  Sex: Female

DRUGS (6)
  1. PEPCID [Concomitant]
     Dosage: ONCE OR TWICE A MONTH
  2. NEXIUM [Suspect]
     Indication: DYSPEPSIA
     Dosage: EVERYDAY
     Route: 048
     Dates: start: 20020101, end: 20110101
  3. BISMUTH SUBSALICYLATE [Concomitant]
  4. ESTRADIOL [Concomitant]
  5. NEXIUM [Suspect]
     Indication: GASTROOESOPHAGEAL REFLUX DISEASE
     Dosage: EVERYDAY
     Route: 048
     Dates: start: 20020101, end: 20110101
  6. ALKA SELTZER [Concomitant]

REACTIONS (1)
  - LOWER LIMB FRACTURE [None]
